FAERS Safety Report 7023589-5 (Version None)
Quarter: 2010Q3

REPORT INFORMATION
  Report Type: 
  Country: None (occurrence: None)
  Receive Date: 20100930
  Receipt Date: 20100930
  Transmission Date: 20110219
  Serious: Yes (Other)
  Sender: FDA-Public Use
  Company Number: None

PATIENT
  Age: 16 Year
  Sex: Male
  Weight: 66.3159 kg

DRUGS (2)
  1. STRATTERA [Suspect]
     Indication: ATTENTION DEFICIT/HYPERACTIVITY DISORDER
     Dosage: 60MG QD PO
     Route: 048
     Dates: start: 20091221, end: 20100812
  2. STRATTERA [Suspect]
     Indication: OPPOSITIONAL DEFIANT DISORDER
     Dosage: 60MG QD PO
     Route: 048
     Dates: start: 20091221, end: 20100812

REACTIONS (1)
  - HYPERHIDROSIS [None]
